FAERS Safety Report 9632301 (Version 1)
Quarter: 2013Q4

REPORT INFORMATION
  Report Type: Spontaneous
  Country: US (occurrence: US)
  Receive Date: 20131018
  Receipt Date: 20131018
  Transmission Date: 20140711
  Serious: Yes (Other)
  Sender: FDA-Public Use
  Company Number: US-SA-2013SA103104

PATIENT
  Age: 70 Year
  Sex: Female

DRUGS (5)
  1. AVAPRO [Suspect]
     Indication: BLOOD PRESSURE
     Route: 048
     Dates: start: 1983
  2. SYNTHROID [Concomitant]
     Dates: start: 1983
  3. PREMARIN [Concomitant]
     Dates: start: 1983
  4. NORVASC [Concomitant]
  5. AMARYL [Concomitant]
     Dates: start: 1983

REACTIONS (8)
  - Spinal fusion surgery [Not Recovered/Not Resolved]
  - Gait disturbance [Not Recovered/Not Resolved]
  - Hypoaesthesia [Not Recovered/Not Resolved]
  - Pain [Not Recovered/Not Resolved]
  - Spinal disorder [Not Recovered/Not Resolved]
  - Adverse event [Not Recovered/Not Resolved]
  - Irritable bowel syndrome [Not Recovered/Not Resolved]
  - Diarrhoea [Not Recovered/Not Resolved]
